FAERS Safety Report 5898090-2 (Version None)
Quarter: 2008Q3

REPORT INFORMATION
  Report Type: 
  Country: None (occurrence: None)
  Receive Date: 20080904
  Receipt Date: 20070607
  Transmission Date: 20090109
  Serious: Yes (Death, Hospitalization)
  Sender: FDA-Public Use
  Company Number: 200711988

PATIENT
  Age: 64 Year
  Sex: Female

DRUGS (12)
  1. CARIMUNE NF [Suspect]
     Indication: GUILLAIN-BARRE SYNDROME
     Dosage: 21 G DAILY IV ; IV ; IV ; IV ; IV ; IV ; IV
     Route: 042
     Dates: start: 20070606, end: 20070606
  2. CARIMUNE NF [Suspect]
     Indication: GUILLAIN-BARRE SYNDROME
     Dosage: 21 G DAILY IV ; IV ; IV ; IV ; IV ; IV ; IV
     Route: 042
     Dates: start: 20070606, end: 20070606
  3. CARIMUNE NF [Suspect]
     Indication: GUILLAIN-BARRE SYNDROME
     Dosage: 21 G DAILY IV ; IV ; IV ; IV ; IV ; IV ; IV
     Route: 042
     Dates: start: 20070606, end: 20070606
  4. CARIMUNE NF [Suspect]
     Indication: GUILLAIN-BARRE SYNDROME
     Dosage: 21 G DAILY IV ; IV ; IV ; IV ; IV ; IV ; IV
     Route: 042
     Dates: start: 20070606, end: 20070606
  5. CARIMUNE NF [Suspect]
     Indication: GUILLAIN-BARRE SYNDROME
     Dosage: 21 G DAILY IV ; IV ; IV ; IV ; IV ; IV ; IV
     Route: 042
     Dates: start: 20070606, end: 20070606
  6. CARIMUNE NF [Suspect]
     Indication: GUILLAIN-BARRE SYNDROME
     Dosage: 21 G DAILY IV ; IV ; IV ; IV ; IV ; IV ; IV
     Route: 042
     Dates: start: 20070606, end: 20070606
  7. CARIMUNE NF [Suspect]
     Indication: GUILLAIN-BARRE SYNDROME
     Dosage: 21 G DAILY IV ; IV ; IV ; IV ; IV ; IV ; IV
     Route: 042
     Dates: start: 20070606, end: 20070606
  8. CARIMUNE [Suspect]
  9. CARIMUNE [Suspect]
  10. CARIMUNE [Suspect]
  11. CARIMUNE [Suspect]
  12. CARIMUNE [Suspect]

REACTIONS (1)
  - ACUTE RESPIRATORY DISTRESS SYNDROME [None]
